FAERS Safety Report 23933098 (Version 1)
Quarter: 2024Q2

REPORT INFORMATION
  Report Type: Spontaneous
  Country: US (occurrence: US)
  Receive Date: 20240603
  Receipt Date: 20240603
  Transmission Date: 20240716
  Serious: No
  Sender: FDA-Public Use
  Company Number: US-Calliditas-2024CAL00839

PATIENT
  Age: 30 Year
  Sex: Female
  Weight: 79.4 kg

DRUGS (1)
  1. TARPEYO [Suspect]
     Active Substance: BUDESONIDE
     Indication: IgA nephropathy
     Route: 048
     Dates: start: 20240428

REACTIONS (7)
  - Inappropriate schedule of product administration [Unknown]
  - Product dose omission in error [Unknown]
  - Hypertension [Unknown]
  - Muscle tightness [Unknown]
  - Weight increased [Unknown]
  - Headache [Unknown]
  - Product administration error [Unknown]
